FAERS Safety Report 4364095-6 (Version None)
Quarter: 2004Q2

REPORT INFORMATION
  Report Type: 
  Country: None (occurrence: None)
  Receive Date: 20040520
  Receipt Date: 20040520
  Transmission Date: 20050107
  Serious: Yes (Life-Threatening)
  Sender: FDA-Public Use
  Company Number: None

PATIENT
  Age: 87 Year
  Sex: Male
  Weight: 88.6 kg

DRUGS (2)
  1. CEFAZOLIN [Suspect]
     Indication: POSTOPERATIVE CARE
     Dosage: 1 GM IV Q 6 HRS
     Route: 042
  2. CEFAZOLIN [Suspect]
     Indication: PROPHYLAXIS
     Dosage: 1 GM IV Q 6 HRS
     Route: 042

REACTIONS (1)
  - BLOOD PRESSURE SYSTOLIC DECREASED [None]
